FAERS Safety Report 7086251-9 (Version None)
Quarter: 2010Q4

REPORT INFORMATION
  Report Type: 
  Country: None (occurrence: None)
  Receive Date: 20101105
  Receipt Date: 20101026
  Transmission Date: 20110411
  Serious: Yes (Life-Threatening)
  Sender: FDA-Public Use
  Company Number: SE-SANOFI-AVENTIS-2010SA066291

PATIENT
  Sex: Female

DRUGS (1)
  1. MULTAQ [Suspect]
     Indication: ATRIAL FIBRILLATION
     Route: 048
     Dates: start: 20101001

REACTIONS (2)
  - CARDIAC ARREST [None]
  - VENTRICULAR TACHYARRHYTHMIA [None]
